FAERS Safety Report 4881934-0 (Version None)
Quarter: 2006Q1

REPORT INFORMATION
  Report Type: 
  Country: None (occurrence: None)
  Receive Date: 20060112
  Receipt Date: 20051227
  Transmission Date: 20060701
  Serious: No
  Sender: FDA-Public Use
  Company Number: 33517

PATIENT

DRUGS (1)
  1. BSS PLUS [Suspect]
     Indication: SURGERY
     Dosage: IO
     Route: 031

REACTIONS (2)
  - ANTERIOR CHAMBER DISORDER [None]
  - CATARACT OPERATION COMPLICATION [None]
